FAERS Safety Report 19094977 (Version 2)
Quarter: 2021Q2

REPORT INFORMATION
  Report Type: Spontaneous
  Country: BE (occurrence: BE)
  Receive Date: 20210405
  Receipt Date: 20210423
  Transmission Date: 20210717
  Serious: Yes (Hospitalization, Other)
  Sender: FDA-Public Use
  Company Number: BE-JNJFOC-20210324173

PATIENT
  Age: 35 Year
  Sex: Male

DRUGS (4)
  1. REMICADE [Suspect]
     Active Substance: INFLIXIMAB
     Route: 042
  2. REMICADE [Suspect]
     Active Substance: INFLIXIMAB
     Indication: CROHN^S DISEASE
     Route: 042
  3. REMICADE [Suspect]
     Active Substance: INFLIXIMAB
     Route: 042
  4. REMICADE [Suspect]
     Active Substance: INFLIXIMAB
     Route: 042

REACTIONS (6)
  - Drug level below therapeutic [Recovered/Resolved]
  - Obsessive-compulsive symptom [Recovered/Resolved]
  - Abdominal pain [Unknown]
  - Nausea [Unknown]
  - Insomnia [Unknown]
  - Decreased appetite [Unknown]
